FAERS Safety Report 8048398-X (Version None)
Quarter: 2011Q4

REPORT INFORMATION
  Report Type: 
  Country: None (occurrence: None)
  Receive Date: 20111209
  Receipt Date: 20111020
  Transmission Date: 20120403
  Serious: No
  Sender: FDA-Public Use
  Company Number: 2011SP049577

PATIENT
  Age: 59 Year
  Sex: Female
  Weight: 69.8539 kg

DRUGS (5)
  1. VICTRELIS [Suspect]
     Indication: HEPATITIS C
     Dosage: 800 MG; Q8H;
     Dates: start: 20110923
  2. NEXIUM [Concomitant]
  3. ONDANSETRON HCL [Concomitant]
  4. XANAX [Concomitant]
  5. PREMARIN [Concomitant]

REACTIONS (3)
  - CONSTIPATION [None]
  - GASTRIC DISORDER [None]
  - WHITE BLOOD CELL COUNT DECREASED [None]
